FAERS Safety Report 9014377 (Version 6)
Quarter: 2013Q4

REPORT INFORMATION
  Report Type: Spontaneous
  Country: US (occurrence: US)
  Receive Date: 20130115
  Receipt Date: 20131107
  Transmission Date: 20140711
  Serious: No
  Sender: FDA-Public Use
  Company Number: US-PFIZER INC-2013015752

PATIENT
  Age: 57 Year
  Sex: Female
  Weight: 51.7 kg

DRUGS (2)
  1. LYRICA [Suspect]
     Indication: AUTONOMIC NEUROPATHY
     Dosage: 100 MG, 3X/DAY
  2. XANAX [Concomitant]
     Indication: ANXIETY
     Dosage: UNK

REACTIONS (5)
  - Off label use [Unknown]
  - Dental caries [Unknown]
  - Alopecia [Unknown]
  - Anxiety [Unknown]
  - Therapeutic response unexpected [Unknown]
